FAERS Safety Report 22248477 (Version 2)
Quarter: 2023Q2

REPORT INFORMATION
  Report Type: Spontaneous
  Country: KR (occurrence: KR)
  Receive Date: 20230425
  Receipt Date: 20230504
  Transmission Date: 20230721
  Serious: Yes (Death, Life-Threatening, Hospitalization, Other)
  Sender: FDA-Public Use
  Company Number: KR-BAXTER-2023BAX019216

PATIENT
  Age: 20 Year
  Sex: Male

DRUGS (4)
  1. DOXORUBICIN [Suspect]
     Active Substance: DOXORUBICIN
     Indication: Metastases to lung
     Dosage: EIGHT CYCLES OF DOXORUBICIN (TOTAL DOSE, 600 MG/M2) FOR 6 MONTHS
     Route: 065
  2. DOXORUBICIN [Suspect]
     Active Substance: DOXORUBICIN
     Indication: Synovial sarcoma metastatic
  3. OLARATUMAB [Concomitant]
     Active Substance: OLARATUMAB
     Indication: Metastases to lung
     Dosage: TOTAL DOSE, 240 MG/KG
     Route: 065
  4. OLARATUMAB [Concomitant]
     Active Substance: OLARATUMAB
     Indication: Synovial sarcoma metastatic

REACTIONS (5)
  - Cardiac failure [Fatal]
  - Embolic stroke [Fatal]
  - Toxic cardiomyopathy [Fatal]
  - Ischaemic stroke [Fatal]
  - Quadrantanopia [Fatal]
